FAERS Safety Report 23911117 (Version 1)
Quarter: 2024Q2

REPORT INFORMATION
  Report Type: Spontaneous
  Country: CN (occurrence: CN)
  Receive Date: 20240528
  Receipt Date: 20240528
  Transmission Date: 20240717
  Serious: Yes (Other)
  Sender: FDA-Public Use
  Company Number: CN-BAYER-2024A077488

PATIENT
  Age: 64 Year
  Sex: Male
  Weight: 60 kg

DRUGS (2)
  1. GADOBUTROL [Suspect]
     Active Substance: GADOBUTROL
     Indication: Computerised tomogram
     Dosage: 7.5 ML, ONCE HIGH-PRESSURE PUMP
     Route: 042
     Dates: start: 20240521, end: 20240521
  2. GADOBUTROL [Suspect]
     Active Substance: GADOBUTROL
     Indication: Salivary gland mass

REACTIONS (7)
  - Pallor [Recovering/Resolving]
  - Cold sweat [Recovered/Resolved]
  - Hyperhidrosis [Recovering/Resolving]
  - Blood pressure decreased [Recovered/Resolved]
  - Tachypnoea [Recovering/Resolving]
  - Mental fatigue [None]
  - Respiratory rate increased [None]

NARRATIVE: CASE EVENT DATE: 20240521
